FAERS Safety Report 7511157-8 (Version None)
Quarter: 2011Q2

REPORT INFORMATION
  Report Type: 
  Country: None (occurrence: None)
  Receive Date: 20110531
  Receipt Date: 20091122
  Transmission Date: 20111010
  Serious: Yes (Other)
  Sender: FDA-Public Use
  Company Number: US-BAYER-200940311NA

PATIENT
  Age: 53 Year
  Sex: Female
  Weight: 70.5 kg

DRUGS (19)
  1. PENICILLIN [Concomitant]
     Dosage: 3000000 U, Q4H
     Route: 042
  2. PLATELETS [Concomitant]
     Dosage: 3 PACKS
     Dates: start: 19940724
  3. TRASYLOL [Suspect]
     Indication: MYOCARDIAC ABSCESS
  4. DOPAMINE HCL [Concomitant]
     Dosage: UNK
     Route: 042
     Dates: start: 19940624
  5. VANCOMYCIN [Concomitant]
     Dosage: PRIOR TO SURGICAL INTERVENTION
  6. RED BLOOD CELLS [Concomitant]
     Dosage: 4 U, UNK
     Dates: start: 19940721
  7. FRESH FROZEN PLASMA [Concomitant]
     Dosage: 4 U, UNK
     Dates: start: 19940721
  8. ZESTORETIC [Concomitant]
     Dosage: UNK
     Dates: end: 20070723
  9. VERSED [Concomitant]
     Dosage: UNK
     Route: 042
     Dates: start: 19940624
  10. COZAAR [Concomitant]
     Dosage: UNK
     Dates: end: 20070723
  11. NAFCILLIN [Concomitant]
     Dosage: PRIOR TO SURGICAL INTERVENTION
  12. GENTAMICIN [Concomitant]
     Dosage: PRIOR TO SURGICAL INTERVENTION
  13. DOBUTAMINE HYDROCHLORIDE [Concomitant]
     Dosage: PRIOR TO SURGICAL INTERVENTION
  14. PROTAMINE SULFATE [Concomitant]
     Dosage: UNK
     Route: 042
     Dates: start: 19940624
  15. TRASYLOL [Suspect]
     Indication: AORTIC VALVE REPLACEMENT
     Dosage: 1ML TEST DOSE, 50ML/HR
     Route: 042
     Dates: start: 19940724
  16. DOBUTAMINE HYDROCHLORIDE [Concomitant]
     Dosage: UNK
     Route: 042
     Dates: start: 19940624
  17. DOPAMINE HCL [Concomitant]
     Dosage: PRIOR TO SURGICAL INTERVENTION
  18. LIDOCAINE [Concomitant]
     Dosage: UNK
     Route: 042
     Dates: start: 19940624
  19. HEPARIN [Concomitant]
     Dosage: UNK
     Route: 042
     Dates: start: 19940624

REACTIONS (12)
  - RENAL IMPAIRMENT [None]
  - EMOTIONAL DISTRESS [None]
  - ANHEDONIA [None]
  - RENAL INJURY [None]
  - STRESS [None]
  - PAIN [None]
  - INJURY [None]
  - UNEVALUABLE EVENT [None]
  - PSYCHIATRIC SYMPTOM [None]
  - ANXIETY [None]
  - FEAR [None]
  - RENAL FAILURE [None]
